FAERS Safety Report 9602240 (Version 1)
Quarter: 2013Q4

REPORT INFORMATION
  Report Type: Spontaneous
  Country: US (occurrence: US)
  Receive Date: 20131007
  Receipt Date: 20131007
  Transmission Date: 20140711
  Serious: Yes (Other)
  Sender: FDA-Public Use
  Company Number: US-ELI_LILLY_AND_COMPANY-US201309008204

PATIENT
  Sex: Female

DRUGS (3)
  1. HUMALOG LISPRO [Suspect]
     Indication: TYPE 1 DIABETES MELLITUS
     Dosage: 8 U, TID
     Dates: start: 201211
  2. HUMALOG LISPRO [Suspect]
     Dosage: 35 U, SINGLE
  3. LANTUS [Concomitant]
     Dosage: 35 U, UNK

REACTIONS (1)
  - Incorrect dose administered [Unknown]
